FAERS Safety Report 23492932 (Version 1)
Quarter: 2024Q1

REPORT INFORMATION
  Report Type: Spontaneous
  Country: LT (occurrence: LT)
  Receive Date: 20240207
  Receipt Date: 20240207
  Transmission Date: 20240409
  Serious: Yes (Hospitalization)
  Sender: FDA-Public Use
  Company Number: None

PATIENT
  Age: 66 Year
  Sex: Male

DRUGS (22)
  1. EDOXABAN TOSYLATE [Suspect]
     Active Substance: EDOXABAN TOSYLATE
     Indication: Atrial fibrillation
     Dosage: 60 MG, QD
     Route: 048
     Dates: start: 20231221, end: 20240120
  2. SPIRONOLACTONE [Concomitant]
     Active Substance: SPIRONOLACTONE
     Indication: Hypertension
     Dosage: UNK (25 MG)
     Route: 048
     Dates: start: 20240110, end: 20240121
  3. SPIRONOLACTONE [Concomitant]
     Active Substance: SPIRONOLACTONE
     Indication: Cardiac failure congestive
  4. DEXAMETHASONE [Concomitant]
     Active Substance: DEXAMETHASONE
     Indication: Cardiac failure congestive
     Dosage: UNK (8 MG)
     Route: 042
     Dates: start: 20240108, end: 20240112
  5. DEXAMETHASONE [Concomitant]
     Active Substance: DEXAMETHASONE
     Indication: Pneumonia
     Dosage: UNK (8 MG)
     Route: 042
     Dates: start: 20240122, end: 20240124
  6. DEXAMETHASONE [Concomitant]
     Active Substance: DEXAMETHASONE
     Indication: Hypersensitivity
  7. DICLOFENAC [Concomitant]
     Active Substance: DICLOFENAC
     Indication: Pleurisy
     Dosage: UNK (75 MG)
     Route: 048
     Dates: start: 20240115, end: 20240116
  8. HYDROCHLOROTHIAZIDE\NEBIVOLOL HYDROCHLORIDE [Concomitant]
     Active Substance: HYDROCHLOROTHIAZIDE\NEBIVOLOL HYDROCHLORIDE
     Indication: Hypertension
     Dosage: 1 DF, QD (5/12.5 MG, 1 TABLET PER DAY)
     Route: 048
     Dates: start: 20240109, end: 20240126
  9. HYDROCHLOROTHIAZIDE\NEBIVOLOL HYDROCHLORIDE [Concomitant]
     Active Substance: HYDROCHLOROTHIAZIDE\NEBIVOLOL HYDROCHLORIDE
     Indication: Cardiac failure congestive
  10. MAGNESIUM SULFATE [Concomitant]
     Active Substance: MAGNESIUM SULFATE\MAGNESIUM SULFATE HEPTAHYDRATE
     Indication: Hypertension
     Dosage: UNK (SANITAS INJECTIVE SURFACE)
     Route: 042
     Dates: start: 20240111, end: 20240116
  11. PIPERACILLIN SODIUM\TAZOBACTAM SODIUM [Concomitant]
     Active Substance: PIPERACILLIN SODIUM\TAZOBACTAM SODIUM
     Indication: Pneumonia
     Dosage: UNK (4/0.5 G X4 )
     Route: 042
     Dates: start: 20240115, end: 20240116
  12. PIPERACILLIN SODIUM\TAZOBACTAM SODIUM [Concomitant]
     Active Substance: PIPERACILLIN SODIUM\TAZOBACTAM SODIUM
     Indication: Hypersensitivity
  13. BROMAZEPAM [Concomitant]
     Active Substance: BROMAZEPAM
     Indication: Cardiac failure congestive
     Dosage: 3 MG, QD (3 MG PER DAY)
     Route: 048
     Dates: start: 20240108, end: 20240125
  14. BROMAZEPAM [Concomitant]
     Active Substance: BROMAZEPAM
     Indication: Insomnia
  15. DIGOXIN [Concomitant]
     Active Substance: DIGOXIN
     Indication: Atrial fibrillation
     Dosage: UNK (0.25 MG)
     Route: 048
     Dates: start: 20240108, end: 20240112
  16. DIGOXIN [Concomitant]
     Active Substance: DIGOXIN
     Indication: Cardiac failure congestive
  17. OMEPRAZOLE [Concomitant]
     Active Substance: OMEPRAZOLE
     Indication: Gastritis
     Dosage: UNK (20 MG)
     Route: 048
     Dates: start: 20240110, end: 20240121
  18. CIPROFLOXACIN [Concomitant]
     Active Substance: CIPROFLOXACIN
     Indication: Pneumonia
     Dosage: UNK (400 MGX2)
     Route: 042
     Dates: start: 20240116, end: 20240119
  19. DOXAZOSIN [Concomitant]
     Active Substance: DOXAZOSIN MESYLATE
     Indication: Cardiac failure congestive
     Dosage: UNK (4 MG)
     Route: 048
     Dates: start: 20240108, end: 20240125
  20. DOXAZOSIN [Concomitant]
     Active Substance: DOXAZOSIN MESYLATE
     Indication: Hypertension
  21. PERINDOPRIL [Concomitant]
     Active Substance: PERINDOPRIL
     Indication: Hypertension
     Dosage: UNK (8 MG)
     Route: 048
     Dates: start: 20240108, end: 20240121
  22. AMOXICILLIN\CLAVULANATE POTASSIUM [Concomitant]
     Active Substance: AMOXICILLIN\CLAVULANATE POTASSIUM
     Indication: Pneumonia
     Dosage: UNK 1.2 GR X3 (IN THE ABSENCE OF AN EFFECT, THE TREATMENT IS INTENSIFIED WITH THE APPOINTMENT OF TAZ
     Route: 042
     Dates: start: 20240108, end: 20240111

REACTIONS (2)
  - Lip swelling [Recovering/Resolving]
  - Erythema annulare [Recovering/Resolving]

NARRATIVE: CASE EVENT DATE: 20240114
